FAERS Safety Report 6964648-2 (Version None)
Quarter: 2010Q3

REPORT INFORMATION
  Report Type: 
  Country: None (occurrence: None)
  Receive Date: 20100903
  Receipt Date: 20100826
  Transmission Date: 20110219
  Serious: Yes (Other)
  Sender: FDA-Public Use
  Company Number: US-ASTRAZENECA-2009UW00579

PATIENT
  Age: 656 Month
  Sex: Male

DRUGS (5)
  1. SEROQUEL [Suspect]
     Indication: DEPRESSION
     Route: 048
     Dates: start: 20020101, end: 20040101
  2. SEROQUEL [Suspect]
     Dosage: 100 TO 300 MG
     Route: 048
     Dates: start: 20030305
  3. SERTRALINE HYDROCHLORIDE [Concomitant]
     Route: 048
  4. FOSINOPRIL SODIUM [Concomitant]
     Route: 048
  5. ACETAMINOPHEN [Concomitant]
     Dosage: 500 MG Q4, 6H
     Route: 048

REACTIONS (2)
  - DIABETES MELLITUS [None]
  - ERECTILE DYSFUNCTION [None]
